FAERS Safety Report 7510105-4 (Version None)
Quarter: 2011Q2

REPORT INFORMATION
  Report Type: 
  Country: None (occurrence: None)
  Receive Date: 20110527
  Receipt Date: 20110523
  Transmission Date: 20111010
  Serious: Yes (Hospitalization, Other)
  Sender: FDA-Public Use
  Company Number: JP-PFIZER INC-2011101543

PATIENT
  Age: 96 Year
  Sex: Female
  Weight: 35 kg

DRUGS (1)
  1. LYRICA [Suspect]
     Indication: POST HERPETIC NEURALGIA
     Dosage: 75 MG, 2X/DAY
     Route: 048
     Dates: start: 20110420, end: 20110422

REACTIONS (4)
  - FALL [None]
  - BLOOD PRESSURE DECREASED [None]
  - ALTERED STATE OF CONSCIOUSNESS [None]
  - FEMORAL NECK FRACTURE [None]
